FAERS Safety Report 4361870-9 (Version None)
Quarter: 2004Q2

REPORT INFORMATION
  Report Type: 
  Country: None (occurrence: None)
  Receive Date: 20040521
  Receipt Date: 20040326
  Transmission Date: 20050107
  Serious: No
  Sender: FDA-Public Use
  Company Number: US-GLAXOSMITHKLINE-A0504781A

PATIENT
  Age: 75 Year
  Sex: Female

DRUGS (5)
  1. WELLBUTRIN XL [Suspect]
     Indication: DEPRESSION
     Dosage: 300MG PER DAY
     Route: 048
     Dates: start: 20040322
  2. RESTORIL [Concomitant]
  3. HYDROCHLOROTHIAZIDE [Concomitant]
  4. LIPITOR [Concomitant]
  5. CAPTOPRIL [Concomitant]

REACTIONS (1)
  - INSOMNIA [None]
